FAERS Safety Report 5031013-7 (Version None)
Quarter: 2006Q2

REPORT INFORMATION
  Report Type: 
  Country: None (occurrence: None)
  Receive Date: 20060621
  Receipt Date: 20060425
  Transmission Date: 20061013
  Serious: No
  Sender: FDA-Public Use
  Company Number: US-GLAXOSMITHKLINE-A0603215A

PATIENT
  Age: 76 Year
  Sex: Male

DRUGS (7)
  1. FLOVENT [Suspect]
     Indication: CHRONIC OBSTRUCTIVE PULMONARY DISEASE
     Dosage: 2PUFF TWICE PER DAY
     Route: 055
     Dates: start: 20060101
  2. LIPITOR [Concomitant]
  3. ATENOLOL [Concomitant]
  4. SULAR [Concomitant]
  5. RANITIDINE [Concomitant]
  6. ALLEGRA [Concomitant]
  7. CLONIDINE [Concomitant]

REACTIONS (1)
  - DRUG INEFFECTIVE [None]
